FAERS Safety Report 9816676 (Version 1)
Quarter: 2014Q1

REPORT INFORMATION
  Report Type: Spontaneous
  Country: US (occurrence: US)
  Receive Date: 20140114
  Receipt Date: 20140114
  Transmission Date: 20141002
  Serious: No
  Sender: FDA-Public Use
  Company Number: US-ENDO PHARMACEUTICALS INC.-ENDC20120070

PATIENT
  Age: 52 Year
  Sex: Female
  Weight: 110.78 kg

DRUGS (5)
  1. ENDOCET 10MG/325MG [Suspect]
     Indication: PAIN
     Dosage: 10/325 MG
     Route: 048
     Dates: start: 201211
  2. ZANAFLEX [Concomitant]
  3. LYRICA [Concomitant]
  4. ASA [Concomitant]
  5. TOPAMAX [Concomitant]

REACTIONS (1)
  - Drug effect decreased [Not Recovered/Not Resolved]
